FAERS Safety Report 13929982 (Version 3)
Quarter: 2018Q2

REPORT INFORMATION
  Report Type: Spontaneous
  Country: BR (occurrence: BR)
  Receive Date: 20170901
  Receipt Date: 20180501
  Transmission Date: 20180711
  Serious: Yes (Other)
  Sender: FDA-Public Use
  Company Number: BR-AMGEN-BRASP2017116493

PATIENT
  Age: 25 Year
  Sex: Female

DRUGS (6)
  1. ENBREL [Suspect]
     Active Substance: ETANERCEPT
     Indication: JUVENILE IDIOPATHIC ARTHRITIS
     Dosage: 50 MG, WEEKLY
     Route: 065
     Dates: start: 2005, end: 2012
  2. PARACETAMOL [Concomitant]
     Active Substance: ACETAMINOPHEN
     Dosage: UNK
  3. METHOTREXATE. [Concomitant]
     Active Substance: METHOTREXATE
     Dosage: UNK
     Route: 048
     Dates: start: 1999, end: 201707
  4. ENBREL [Suspect]
     Active Substance: ETANERCEPT
     Indication: JUVENILE IDIOPATHIC ARTHRITIS
     Dosage: 50 MG, WEEKLY
     Route: 065
     Dates: start: 2012, end: 2013
  5. ENBREL [Suspect]
     Active Substance: ETANERCEPT
     Dosage: 50 MG, WEEKLY
     Route: 065
     Dates: start: 20161205
  6. RANITIDINE. [Concomitant]
     Active Substance: RANITIDINE
     Dosage: UNK, AS NEEDED
     Dates: start: 201706

REACTIONS (14)
  - Myocardial infarction [Recovered/Resolved]
  - Somnolence [Not Recovered/Not Resolved]
  - Arthralgia [Unknown]
  - Circumstance or information capable of leading to medication error [Unknown]
  - Fatigue [Not Recovered/Not Resolved]
  - Anxiety [Recovered/Resolved]
  - Drug effect incomplete [Not Recovered/Not Resolved]
  - Poor quality sleep [Unknown]
  - Hand deformity [Recovered/Resolved]
  - Arrhythmia [Recovered/Resolved]
  - Stress [Unknown]
  - Chest pain [Recovered/Resolved]
  - Depressed mood [Recovered/Resolved]
  - Malaise [Unknown]

NARRATIVE: CASE EVENT DATE: 2012
